FAERS Safety Report 7156340-9 (Version None)
Quarter: 2010Q4

REPORT INFORMATION
  Report Type: 
  Country: None (occurrence: None)
  Receive Date: 20101214
  Receipt Date: 20101209
  Transmission Date: 20110411
  Serious: Yes (Congenital Anomaly, Other)
  Sender: FDA-Public Use
  Company Number: US-PFIZER INC-2007095340

PATIENT
  Sex: Male
  Weight: 2 kg

DRUGS (5)
  1. ZOLOFT [Suspect]
     Dosage: UNK
     Route: 064
     Dates: start: 19991001
  2. ZOLOFT [Suspect]
     Dosage: 25 MG, EVERY DAY
     Route: 064
     Dates: start: 20000525, end: 20000622
  3. ZOLOFT [Suspect]
     Dosage: 50 MG, UNK
     Route: 064
     Dates: start: 20000622
  4. TYLENOL (CAPLET) [Concomitant]
     Indication: EAR DISORDER
     Dosage: UNK
     Route: 064
  5. METRONIDAZOLE [Concomitant]
     Dosage: 500 MG, 2X/DAY
     Route: 064
     Dates: start: 20000525, end: 20000501

REACTIONS (5)
  - DRUG EXPOSURE DURING PREGNANCY [None]
  - LIMB REDUCTION DEFECT [None]
  - SCOLIOSIS [None]
  - TOOTH DISORDER [None]
  - TORTICOLLIS [None]
